FAERS Safety Report 9221591 (Version 1)
Quarter: 2013Q1

REPORT INFORMATION
  Report Type: Spontaneous
  Country: US (occurrence: None)
  Receive Date: 20120831
  Receipt Date: 20120831
  Transmission Date: 20140127
  Serious: Yes (Hospitalization)
  Sender: FDA-Public Use
  Company Number: 1000030232

PATIENT
  Age: 71 Year
  Sex: Male

DRUGS (16)
  1. DALIRESP [Suspect]
     Route: 048
     Dates: start: 20120419, end: 20120428
  2. LANTUS (INSULIN GLARGINE) (INSULIN GLARGINE) [Concomitant]
  3. HUMALOG (INSULIN LISPRO) (INSULIN LISPRO) [Concomitant]
  4. ALLOPURINOL (ALLOPURINOL) (ALLOPURINOL) [Concomitant]
  5. OMEPRAZOLE (OMEPRAZOLE) (OMEPRAZOLE) [Concomitant]
  6. OXYBUTYNIN (OXYBUTYNIN) (OXYBUTYNIN) [Concomitant]
  7. SPIRONOLACTONE (SPIRONOLACTONE) (SPIRONOLACTONE) [Concomitant]
  8. POTASSIUM (POTASSIUM) (POTASSIUM) [Concomitant]
  9. FISH OIL (FISH OIL) (FISH OIL) [Concomitant]
  10. TYLENOL (ACETAMINOPHEN) (ACETAMINOPHEN) [Concomitant]
  11. SPIRIVA (TIOTROPIUM BROMIDE) (TIOTROPIUM BROMIDE) [Concomitant]
  12. DIOVAN (VALSARTAN ) (VALSARTAN) [Concomitant]
  13. ALEVE (NAPROXEN SODIUM) (NAPROXEN SODIUM) [Concomitant]
  14. VENTOLIN (ALBUTEROL) (ALBUTEROL) [Concomitant]
  15. TERAZOSIN (TERAZOSIN) (TERAZOSIN) [Concomitant]
  16. LASIX (FUROSEMIDE) (FUROSEMIDE) [Concomitant]

REACTIONS (2)
  - Renal failure acute [None]
  - Chest pain [None]
